FAERS Safety Report 12017335 (Version 1)
Quarter: 2016Q1

REPORT INFORMATION
  Report Type: Report from Study
  Country: US (occurrence: US)
  Receive Date: 20160205
  Receipt Date: 20160205
  Transmission Date: 20160526
  Serious: No
  Sender: FDA-Public Use
  Company Number: US-ABBVIE-15K-163-1453872-00

PATIENT
  Age: 65 Year
  Sex: Female

DRUGS (1)
  1. HUMIRA [Suspect]
     Active Substance: ADALIMUMAB
     Indication: RHEUMATOID ARTHRITIS
     Route: 065
     Dates: start: 20150521

REACTIONS (6)
  - Drug ineffective [Recovering/Resolving]
  - Rheumatoid arthritis [Recovered/Resolved]
  - White blood cell count increased [Recovered/Resolved]
  - White blood cell count increased [Recovering/Resolving]
  - Hypoaesthesia [Recovering/Resolving]
  - Rheumatoid arthritis [Unknown]

NARRATIVE: CASE EVENT DATE: 201508
